FAERS Safety Report 15418977 (Version 1)
Quarter: 2018Q3

REPORT INFORMATION
  Report Type: Spontaneous
  Country: US (occurrence: US)
  Receive Date: 20180914
  Receipt Date: 20180914
  Transmission Date: 20181010
  Serious: No
  Sender: FDA-Public Use
  Company Number: None

PATIENT
  Sex: Female

DRUGS (1)
  1. AIMOVIG [Suspect]
     Active Substance: ERENUMAB-AOOE
     Indication: MIGRAINE WITHOUT AURA
     Route: 058
     Dates: start: 20180803

REACTIONS (7)
  - Tenderness [None]
  - Abdominal pain upper [None]
  - Pain [None]
  - Discomfort [None]
  - Muscle spasms [None]
  - Swelling [None]
  - Injection site swelling [None]
